FAERS Safety Report 4310009-4 (Version None)
Quarter: 2004Q1

REPORT INFORMATION
  Report Type: 
  Country: None (occurrence: None)
  Receive Date: 20040301
  Receipt Date: 20031201
  Transmission Date: 20041129
  Serious: No
  Sender: FDA-Public Use
  Company Number: WAES 0310USA02384

PATIENT
  Age: 49 Year
  Sex: Male
  Weight: 100.6985 kg

DRUGS (11)
  1. ZETIA [Suspect]
     Indication: HYPERCHOLESTEROLAEMIA
     Dosage: 10 MG/DAILY/PO
     Route: 048
     Dates: start: 20030513, end: 20031009
  2. ALTACE [Concomitant]
  3. ARANESP [Concomitant]
  4. COZAAR [Concomitant]
  5. FLORINEF [Concomitant]
  6. HUMALOG [Concomitant]
  7. NEPHROCAPS [Concomitant]
  8. NORVASC [Concomitant]
  9. DOXAZOSIN MESYLATE [Concomitant]
  10. FUROSEMIDE [Concomitant]
  11. IRON (UNSPECIFIED) [Concomitant]

REACTIONS (1)
  - BLOOD CREATINE PHOSPHOKINASE INCREASED [None]
